FAERS Safety Report 7991564-X (Version None)
Quarter: 2011Q4

REPORT INFORMATION
  Report Type: 
  Country: None (occurrence: None)
  Receive Date: 20111219
  Receipt Date: 20111214
  Transmission Date: 20120403
  Serious: Yes (Other)
  Sender: FDA-Public Use
  Company Number: BR-PFIZER INC-2011295918

PATIENT
  Age: 67 Year
  Sex: Female
  Weight: 65 kg

DRUGS (6)
  1. VARENICLINE TARTRATE [Suspect]
     Dosage: UNK
     Route: 048
     Dates: start: 20111121, end: 20110101
  2. LEXAPRO [Concomitant]
     Indication: BIPOLAR DISORDER
     Dosage: 10 MG, 1X/DAY
     Dates: start: 20080101
  3. GLUCOSAMINE [Concomitant]
     Indication: OSTEOARTHRITIS
     Dosage: UNK
     Dates: start: 19960101
  4. VARENICLINE TARTRATE [Suspect]
     Dosage: 1 MG, 2X/DAY
     Route: 048
     Dates: start: 20110101, end: 20111201
  5. VARENICLINE TARTRATE [Suspect]
     Indication: SMOKING CESSATION THERAPY
     Dosage: UNK
     Route: 048
     Dates: start: 20080101, end: 20080101
  6. TRILEPTAL [Concomitant]
     Indication: BIPOLAR DISORDER
     Dosage: 300 MG, 2X/DAY
     Dates: start: 20080101

REACTIONS (7)
  - DIABETES MELLITUS [None]
  - NAUSEA [None]
  - OSTEOPOROSIS [None]
  - FEAR [None]
  - MALAISE [None]
  - POISONING [None]
  - VITAMIN D DECREASED [None]
